FAERS Safety Report 18161546 (Version 1)
Quarter: 2020Q3

REPORT INFORMATION
  Report Type: Report from Study
  Country: None (occurrence: US)
  Receive Date: 20200817
  Receipt Date: 20200817
  Transmission Date: 20201103
  Serious: Yes (Hospitalization, Other)
  Sender: FDA-Public Use
  Company Number: US-ABBVIE-20K-163-3505809-00

PATIENT
  Age: 77 Year
  Sex: Male
  Weight: 86.08 kg

DRUGS (4)
  1. RINVOQ [Suspect]
     Active Substance: UPADACITINIB
     Indication: RHEUMATOID ARTHRITIS
     Route: 048
     Dates: start: 20200516
  2. AZO [Concomitant]
     Active Substance: PHENAZOPYRIDINE HYDROCHLORIDE
     Indication: URINARY INCONTINENCE
  3. BABY ASPIRIN [Concomitant]
     Active Substance: ASPIRIN
     Indication: PRODUCT USED FOR UNKNOWN INDICATION
  4. CELECOXIB. [Concomitant]
     Active Substance: CELECOXIB
     Indication: URINARY INCONTINENCE

REACTIONS (6)
  - Atrial fibrillation [Recovered/Resolved]
  - Vascular injury [Recovered/Resolved]
  - Stress [Recovered/Resolved]
  - Pulmonary mass [Not Recovered/Not Resolved]
  - Ileus [Recovering/Resolving]
  - Internal haemorrhage [Recovered/Resolved]

NARRATIVE: CASE EVENT DATE: 202007
